FAERS Safety Report 4872006-X (Version None)
Quarter: 2005Q4

REPORT INFORMATION
  Report Type: 
  Country: None (occurrence: None)
  Receive Date: 20051230
  Receipt Date: 20051222
  Transmission Date: 20060501
  Serious: Yes (Hospitalization)
  Sender: FDA-Public Use
  Company Number: Q05-057

PATIENT
  Age: 75 Year
  Sex: Male
  Weight: 60.3284 kg

DRUGS (10)
  1. QUADRAMET [Suspect]
     Indication: PROSTATE CANCER
     Dosage: 52.5 MCI
     Dates: start: 20051109
  2. HYDROCHLOROTHIAZIDE [Concomitant]
  3. LOTREL [Concomitant]
  4. DIPHENOXYLATE [Concomitant]
  5. ATROPINE AND PHENERGAN [Concomitant]
  6. LEVAQUIN [Concomitant]
  7. IV HYDRATION WITH NORMAL SALINE [Concomitant]
  8. ZOSYN [Concomitant]
  9. FLAGYL [Concomitant]
  10. DOPAMINE [Concomitant]

REACTIONS (4)
  - NEUTROPENIC SEPSIS [None]
  - OXYGEN SATURATION DECREASED [None]
  - SEPTIC SHOCK [None]
  - THROMBOCYTOPENIA [None]
